FAERS Safety Report 6762516-2 (Version None)
Quarter: 2010Q2

REPORT INFORMATION
  Report Type: 
  Country: None (occurrence: None)
  Receive Date: 20100609
  Receipt Date: 20100602
  Transmission Date: 20101027
  Serious: Yes (Hospitalization)
  Sender: FDA-Public Use
  Company Number: CA-ASTRAZENECA-2010SE12194

PATIENT
  Age: 71 Year
  Sex: Female

DRUGS (1)
  1. CRESTOR [Suspect]
     Route: 048
     Dates: start: 20091124

REACTIONS (3)
  - CHEST PAIN [None]
  - CREPITATIONS [None]
  - DYSPNOEA EXERTIONAL [None]
